FAERS Safety Report 4881674-8 (Version None)
Quarter: 2006Q1

REPORT INFORMATION
  Report Type: 
  Country: None (occurrence: None)
  Receive Date: 20060116
  Receipt Date: 20060106
  Transmission Date: 20060701
  Serious: Yes (Other)
  Sender: FDA-Public Use
  Company Number: BR-GLAXOSMITHKLINE-A0588827A

PATIENT
  Age: 73 Year
  Sex: Female

DRUGS (20)
  1. NIQUITIN [Suspect]
     Dosage: 21MG UNKNOWN
  2. GLUCOSAMINE [Concomitant]
  3. SODIUM CASEINATE [Concomitant]
     Dosage: 10G TWICE PER DAY
  4. NPH INSULIN [Concomitant]
     Dosage: 10U TWICE PER DAY
  5. EPOGEN [Concomitant]
     Dosage: 4000U WEEKLY
  6. CLEXANE [Concomitant]
     Dosage: 40MG PER DAY
  7. PREDNISONE [Concomitant]
  8. IMIPENEM [Concomitant]
     Dosage: 500MG FOUR TIMES PER DAY
  9. 0.9% NORMAL SALINE SOLUTION [Concomitant]
     Route: 042
  10. MOTILIUM [Concomitant]
     Dosage: 10ML THREE TIMES PER DAY
  11. ANTAK [Concomitant]
     Dosage: 150MG TWICE PER DAY
  12. PROLOPA [Concomitant]
     Dosage: 250MG FIVE TIMES PER DAY
  13. TRILEPTAL [Concomitant]
     Dosage: 300MG TWICE PER DAY
  14. NEURONTIN [Concomitant]
     Dosage: 300MG THREE TIMES PER DAY
  15. ZYPREXA [Concomitant]
     Dosage: 5MG PER DAY
  16. MONOCORDIL [Concomitant]
     Dosage: 20MG TWICE PER DAY
  17. DILTIAZEM HCL [Concomitant]
     Dosage: 30MG THREE TIMES PER DAY
  18. ALPRAZOLAM [Concomitant]
     Dosage: 2MG PER DAY
  19. SEROQUEL [Concomitant]
  20. OXYGEN [Concomitant]

REACTIONS (1)
  - DEPENDENCE [None]
